FAERS Safety Report 19321260 (Version 1)
Quarter: 2021Q2

REPORT INFORMATION
  Report Type: Spontaneous
  Country: US (occurrence: US)
  Receive Date: 20210528
  Receipt Date: 20210528
  Transmission Date: 20210717
  Serious: No
  Sender: FDA-Public Use
  Company Number: None

PATIENT
  Age: 66 Year
  Sex: Male

DRUGS (1)
  1. LISINOPRIL. [Suspect]
     Active Substance: LISINOPRIL
     Indication: HYPERTENSION
     Route: 046
     Dates: start: 20210324, end: 20210521

REACTIONS (4)
  - Acute kidney injury [None]
  - Hyperkalaemia [None]
  - Dehydration [None]
  - Electrocardiogram T wave peaked [None]

NARRATIVE: CASE EVENT DATE: 20210521
